FAERS Safety Report 6655951-4 (Version None)
Quarter: 2010Q1

REPORT INFORMATION
  Report Type: 
  Country: None (occurrence: None)
  Receive Date: 20100326
  Receipt Date: 20100326
  Transmission Date: 20100710
  Serious: Yes (Other)
  Sender: FDA-Public Use
  Company Number: None

PATIENT
  Sex: Female
  Weight: 52.1637 kg

DRUGS (1)
  1. GABAPENTIN [Suspect]
     Indication: NEUROPATHY PERIPHERAL
     Dates: start: 20090901

REACTIONS (7)
  - ABDOMINAL PAIN UPPER [None]
  - CONDITION AGGRAVATED [None]
  - DYSPHONIA [None]
  - OEDEMA PERIPHERAL [None]
  - PURPURA [None]
  - RHINITIS [None]
  - WEIGHT INCREASED [None]
